FAERS Safety Report 8275490-7 (Version None)
Quarter: 2012Q2

REPORT INFORMATION
  Report Type: 
  Country: None (occurrence: None)
  Receive Date: 20120411
  Receipt Date: 20120328
  Transmission Date: 20120825
  Serious: Yes (Other)
  Sender: FDA-Public Use
  Company Number: US-BAXTER-2012BH007826

PATIENT
  Sex: Female
  Weight: 50.848 kg

DRUGS (27)
  1. PROVIGIL [Concomitant]
     Route: 065
  2. DIPHENHYDRAMINE HCL [Concomitant]
     Indication: DYSPHAGIA
  3. GABAPENTIN [Concomitant]
  4. FENTANYL [Concomitant]
     Route: 061
  5. DIPHENOXYLATE [Concomitant]
  6. RELISTOR [Concomitant]
     Indication: NEUROGENIC BOWEL
     Route: 058
  7. DIPHENHYDRAMINE HCL [Concomitant]
     Indication: PHARYNGITIS
     Route: 048
  8. DIPHENHYDRAMINE HCL [Concomitant]
     Indication: LARYNGITIS
  9. OXYCODONE HCL [Concomitant]
     Indication: PAIN
  10. KENALOG [Concomitant]
  11. ACYCLOVIR [Concomitant]
     Indication: PROPHYLAXIS
  12. VAGIFEM [Concomitant]
     Route: 065
  13. LEVOTHYROXINE SODIUM [Concomitant]
     Indication: HYPOTHYROIDISM
     Dosage: UNKNOWN
     Route: 065
  14. ATROVENT [Concomitant]
     Indication: RALES
     Dosage: 12.5/200 ACT
  15. ADVAIR DISKUS 100/50 [Concomitant]
     Indication: ASTHMA
     Dosage: 1 PUFF
  16. ACYCLOVIR [Concomitant]
     Indication: HERPES ZOSTER
     Route: 065
  17. VOLTAREN FLEX [Concomitant]
     Route: 065
  18. PREVACID [Concomitant]
     Route: 065
  19. METOCLOPRAMIDE [Concomitant]
     Route: 065
  20. RELISTOR [Concomitant]
     Route: 058
  21. LORAZEPAM [Concomitant]
     Route: 065
  22. GAMMAGARD LIQUID [Suspect]
     Route: 042
     Dates: start: 20110127
  23. CYCLOBENAZPRINE [Concomitant]
     Indication: MUSCLE SPASMS
     Route: 065
  24. FORTICAL                           /00371903/ [Concomitant]
     Indication: OSTEOPOROSIS
     Dosage: 1 SPRAY
     Route: 065
  25. METOCLOPRAMIDE [Concomitant]
     Indication: NAUSEA
  26. LORAZEPAM [Concomitant]
     Indication: NAUSEA
  27. GENTAMICIN [Concomitant]
     Indication: PROPHYLAXIS

REACTIONS (3)
  - VERTEBRAL ARTERY OCCLUSION [None]
  - NAUSEA [None]
  - INFECTION [None]
